FAERS Safety Report 25225226 (Version 3)
Quarter: 2025Q2

REPORT INFORMATION
  Report Type: Spontaneous
  Country: CA (occurrence: CA)
  Receive Date: 20250422
  Receipt Date: 20250627
  Transmission Date: 20250717
  Serious: Yes (Other)
  Sender: PFIZER
  Company Number: CA-PFIZER INC-202500082112

PATIENT
  Age: 46 Year
  Sex: Female
  Weight: 62.2 kg

DRUGS (5)
  1. SOMATROPIN [Suspect]
     Active Substance: SOMATROPIN
     Indication: Growth hormone deficiency
     Dosage: 0.45MG ALTERNATING WITH 0.3MG, ONCE DAILY
     Route: 058
     Dates: start: 2023
  2. SOMATROPIN [Suspect]
     Active Substance: SOMATROPIN
     Dosage: 0.45MG ALTERNATING WITH 0.3MG, ONCE DAILY
     Route: 058
  3. SOMATROPIN [Suspect]
     Active Substance: SOMATROPIN
     Dosage: 500 UG, WEEKLY
     Route: 058
     Dates: end: 2023
  4. SOMATROPIN [Suspect]
     Active Substance: SOMATROPIN
     Dosage: 400 UG, DAILY
     Route: 058
  5. HYDROXYCHLOROQUINE [Concomitant]
     Active Substance: HYDROXYCHLOROQUINE

REACTIONS (10)
  - Pneumonia [Unknown]
  - Malaise [Unknown]
  - Fatigue [Unknown]
  - Thirst [Unknown]
  - Pollakiuria [Unknown]
  - Weight decreased [Unknown]
  - Lymphadenopathy [Unknown]
  - Red blood cell count decreased [Unknown]
  - Mean cell volume increased [Unknown]
  - Blood alkaline phosphatase decreased [Unknown]

NARRATIVE: CASE EVENT DATE: 20240201
